FAERS Safety Report 24056097 (Version 1)
Quarter: 2024Q3

REPORT INFORMATION
  Report Type: Report from Study
  Country: US (occurrence: US)
  Receive Date: 20240705
  Receipt Date: 20240705
  Transmission Date: 20241017
  Serious: Yes (Other)
  Sender: pharmaAND
  Company Number: US-Pharmaand-2024000506

PATIENT
  Sex: Female

DRUGS (2)
  1. RUBRACA [Suspect]
     Active Substance: RUCAPARIB CAMSYLATE
     Indication: Ovarian cancer
     Dosage: 300 MG TWICE DAILY
     Route: 048
     Dates: start: 2013, end: 202402
  2. RUBRACA [Suspect]
     Active Substance: RUCAPARIB CAMSYLATE
     Dosage: 300 MG TWICE DAILY 12 HOURS APART
     Route: 048
     Dates: start: 202406

REACTIONS (1)
  - Neoplasm [Unknown]
